FAERS Safety Report 9959547 (Version 1)
Quarter: 2014Q1

REPORT INFORMATION
  Report Type: Spontaneous
  Country: JP (occurrence: None)
  Receive Date: 20140227
  Receipt Date: 20140227
  Transmission Date: 20141002
  Serious: Yes (Hospitalization)
  Sender: FDA-Public Use
  Company Number: DSJ-2014-04178

PATIENT
  Age: 71 Year
  Sex: Male

DRUGS (14)
  1. OLMETEC (OLMESARTAN MEDOXOMIL) (TABLET) (OLMESARTAN MEDOXOMIL) [Suspect]
     Indication: HYPERTENSION
     Route: 048
     Dates: end: 20121217
  2. ISENTRESS [Suspect]
     Indication: HIV INFECTION
     Route: 048
     Dates: start: 20110615
  3. INTELENCE [Suspect]
     Indication: HIV INFECTION
     Route: 048
     Dates: start: 20110615
  4. CELSENTRI [Suspect]
     Indication: HIV INFECTION
     Route: 048
     Dates: start: 20110615
  5. TAMBOCOR (FLECAINIDE ACETATE) (FLECAINIDE ACETATE) [Concomitant]
  6. AMLODIN OD (AMLODIPINE BESILATE) (TABLET) (AMLODIPINE BESILATE) [Concomitant]
  7. ALOSITOL (ALLOPURINOL) (TABLET) (ALLOPURINOL) [Concomitant]
  8. BAYASPIRIN (ACETYLSALICYLIC ACID) (TABLET) (ACETYLSALICYLIC ACID) [Concomitant]
  9. LASIX (FUROSEMIDE) (FUROSEMIDE) [Concomitant]
  10. SUNRYTHM (PILSICAINIDE HYDROCHLORIDE) (PILSICAINIDE HYDROCHLORIDE) [Concomitant]
  11. DIAMOX (ACETAZOLAMIDE) (ACETAZOLAMIDE) [Concomitant]
  12. XALATAN (LATANOPROST) (EYE DROPS) (LATANOPROST) [Concomitant]
  13. TIMOPTOL (TIMOLOL MALEATE) (EYE DROPS) (TIMOLOL MALEATE) [Concomitant]
  14. TRUSOPT (DORZOLAMIDE HYDROCHLORIDE) (EYE DROPS) (DORZOLAMIDE HYDROCHLORIDE) [Concomitant]

REACTIONS (3)
  - Vitreous haemorrhage [None]
  - Glaucoma [None]
  - Hyperkalaemia [None]
